FAERS Safety Report 7725176-X (Version None)
Quarter: 2011Q3

REPORT INFORMATION
  Report Type: 
  Country: None (occurrence: None)
  Receive Date: 20110901
  Receipt Date: 20110825
  Transmission Date: 20111222
  Serious: Yes (Other)
  Sender: FDA-Public Use
  Company Number: IT-MERCK-1108USA03179

PATIENT
  Age: 61 Year
  Sex: Female

DRUGS (9)
  1. THALIDOMIDE [Suspect]
     Indication: AMYLOIDOSIS
     Dosage: DAYS 1-21
     Route: 065
  2. FUROSEMIDE [Concomitant]
     Route: 065
  3. ENALAPRIL MALEATE [Concomitant]
     Route: 065
  4. ATORVASTATIN [Concomitant]
     Route: 065
  5. ASPIRIN [Concomitant]
     Indication: PROPHYLAXIS
     Route: 065
  6. DECADRON [Suspect]
     Indication: MULTIPLE MYELOMA
     Dosage: EVERY 28 DAYS
     Route: 048
  7. THALIDOMIDE [Suspect]
     Indication: MULTIPLE MYELOMA
     Dosage: DAYS 1-21
     Route: 065
  8. SPIRONOLACTONE [Concomitant]
     Route: 065
  9. DECADRON [Suspect]
     Indication: AMYLOIDOSIS
     Dosage: EVERY 28 DAYS
     Route: 048

REACTIONS (7)
  - FATIGUE [None]
  - ACUTE MYOCARDIAL INFARCTION [None]
  - CONSTIPATION [None]
  - MENTAL IMPAIRMENT [None]
  - TOXICITY TO VARIOUS AGENTS [None]
  - FLUID RETENTION [None]
  - DYSPNOEA EXERTIONAL [None]
